FAERS Safety Report 7361049-2 (Version None)
Quarter: 2011Q1

REPORT INFORMATION
  Report Type: 
  Country: None (occurrence: None)
  Receive Date: 20110318
  Receipt Date: 20110310
  Transmission Date: 20110831
  Serious: Yes (Hospitalization)
  Sender: FDA-Public Use
  Company Number: JP-ROCHE-763802

PATIENT
  Sex: Female

DRUGS (5)
  1. ONEALFA [Concomitant]
     Route: 048
  2. LORFENAMIN [Concomitant]
     Route: 048
  3. BENET [Concomitant]
     Route: 048
  4. ACTEMRA [Suspect]
     Indication: RHEUMATOID ARTHRITIS
     Route: 041
     Dates: start: 20100616, end: 20110202
  5. MARZULENE [Concomitant]
     Dosage: FPRM: GRANULATED POWDER
     Route: 048

REACTIONS (1)
  - ARTHRITIS BACTERIAL [None]
